FAERS Safety Report 8485899-4 (Version None)
Quarter: 2012Q3

REPORT INFORMATION
  Report Type: 
  Country: None (occurrence: None)
  Receive Date: 20120703
  Receipt Date: 20120618
  Transmission Date: 20120928
  Serious: Yes (Death, Life-Threatening, Hospitalization)
  Sender: FDA-Public Use
  Company Number: FR-VERTEX PHARMACEUTICALS INC.-000000000000000105

PATIENT
  Sex: Male
  Weight: 82.5 kg

DRUGS (5)
  1. INCIVO (TELAPREVIR) [Suspect]
     Indication: HEPATITIS C
     Dosage: DOSAGE FORM: TABLET
     Dates: start: 20111027, end: 20120108
  2. EPOETIN NOS [Concomitant]
  3. NEBIVOLOL HCL [Concomitant]
     Indication: HYPERTENSION
     Dates: start: 20080101
  4. PEGASYS [Concomitant]
     Indication: HEPATITIS C
     Route: 048
     Dates: start: 20111028, end: 20120101
  5. REBETOL [Concomitant]
     Indication: HEPATITIS C
     Route: 048
     Dates: start: 20111028, end: 20120101

REACTIONS (4)
  - ACUTE RESPIRATORY DISTRESS SYNDROME [None]
  - GENERAL PHYSICAL HEALTH DETERIORATION [None]
  - PNEUMONIA [None]
  - PULMONARY FIBROSIS [None]
